FAERS Safety Report 17194712 (Version 1)
Quarter: 2020Q1

REPORT INFORMATION
  Report Type: Spontaneous
  Country: US (occurrence: US)
  Receive Date: 20191223
  Receipt Date: 20191223
  Transmission Date: 20200409
  Serious: Yes (Hospitalization)
  Sender: FDA-Public Use
  Company Number: None

PATIENT
  Age: 32 Year
  Sex: Female
  Weight: 67.1 kg

DRUGS (4)
  1. PROPRANOLOL [Concomitant]
     Active Substance: PROPRANOLOL HYDROCHLORIDE
     Dates: start: 20190726, end: 20190829
  2. FILGRASTIM [Concomitant]
     Active Substance: FILGRASTIM
     Dates: start: 20190823, end: 20190828
  3. CEFEPIME [Concomitant]
     Active Substance: CEFEPIME HYDROCHLORIDE
     Dates: start: 20190823, end: 20190828
  4. METHIMAZOLE TABLETS [Suspect]
     Active Substance: METHIMAZOLE
     Indication: HYPERTHYROIDISM
     Route: 048
     Dates: start: 20190726, end: 20190821

REACTIONS (6)
  - Pyrexia [None]
  - Rash [None]
  - White blood cell count decreased [None]
  - Febrile neutropenia [None]
  - Neutrophil count [None]
  - Pharyngitis [None]

NARRATIVE: CASE EVENT DATE: 20190822
